FAERS Safety Report 9137125 (Version 1)
Quarter: 2013Q1

REPORT INFORMATION
  Report Type: Spontaneous
  Country: US (occurrence: US)
  Receive Date: 20130219
  Receipt Date: 20130219
  Transmission Date: 20140127
  Serious: Yes (Other)
  Sender: FDA-Public Use
  Company Number: US-BRISTOL-MYERS SQUIBB COMPANY-16803934

PATIENT
  Age: 82 Year
  Sex: Male

DRUGS (1)
  1. ORENCIA [Suspect]
     Dosage: LAST INF ON 18-JUL-2012
     Route: 042
     Dates: start: 20120326

REACTIONS (3)
  - Skin cancer [Not Recovered/Not Resolved]
  - Vision blurred [Not Recovered/Not Resolved]
  - Arthralgia [Not Recovered/Not Resolved]
